FAERS Safety Report 8276327-2 (Version None)
Quarter: 2012Q2

REPORT INFORMATION
  Report Type: 
  Country: None (occurrence: None)
  Receive Date: 20120412
  Receipt Date: 20120409
  Transmission Date: 20120825
  Serious: Yes (Death)
  Sender: FDA-Public Use
  Company Number: PHHY2012MX030486

PATIENT
  Age: 47 Year
  Sex: Male

DRUGS (2)
  1. SUNITINIB MALATE [Concomitant]
  2. AFINITOR [Suspect]
     Route: 048

REACTIONS (1)
  - DEATH [None]
